FAERS Safety Report 5828558-6 (Version None)
Quarter: 2008Q3

REPORT INFORMATION
  Report Type: 
  Country: None (occurrence: None)
  Receive Date: 20080731
  Receipt Date: 20080724
  Transmission Date: 20090109
  Serious: Yes (Hospitalization)
  Sender: FDA-Public Use
  Company Number: AU-ASTRAZENECA-2008AP05733

PATIENT
  Age: 21 Year
  Sex: Male

DRUGS (1)
  1. MEROPENEM [Suspect]
     Route: 042

REACTIONS (1)
  - BURNING SENSATION [None]
